FAERS Safety Report 4881787-0 (Version None)
Quarter: 2006Q1

REPORT INFORMATION
  Report Type: 
  Country: None (occurrence: None)
  Receive Date: 20060112
  Receipt Date: 20051230
  Transmission Date: 20060701
  Serious: Yes (Other)
  Sender: FDA-Public Use
  Company Number: 2006001997

PATIENT
  Age: 82 Year
  Sex: Female
  Weight: 72.5755 kg

DRUGS (3)
  1. LYRICA [Suspect]
     Indication: NERVE INJURY
     Dosage: 150 MG (75 MG, 2 IN 1 D), ORAL
     Route: 048
     Dates: start: 20051101, end: 20050101
  2. VERAPAMIL [Concomitant]
  3. CENTRUM (MINERALS NOS, VITAMINS NOS) [Concomitant]

REACTIONS (10)
  - ASTHENIA [None]
  - DYSSTASIA [None]
  - FALL [None]
  - FEELING DRUNK [None]
  - HYPOTONIC URINARY BLADDER [None]
  - MUSCLE ENZYME INCREASED [None]
  - MYALGIA [None]
  - POLLAKIURIA [None]
  - PYREXIA [None]
  - RENAL IMPAIRMENT [None]
